FAERS Safety Report 25201672 (Version 1)
Quarter: 2025Q2

REPORT INFORMATION
  Report Type: Spontaneous
  Country: US (occurrence: US)
  Receive Date: 20250416
  Receipt Date: 20250416
  Transmission Date: 20250716
  Serious: No
  Sender: JOHNSON AND JOHNSON
  Company Number: US-JNJFOC-20250366796

PATIENT
  Age: 79 Year
  Sex: Female
  Weight: 68 kg

DRUGS (40)
  1. OPSUMIT [Suspect]
     Active Substance: MACITENTAN
     Indication: Pulmonary hypertension
     Dates: end: 202412
  2. TREPROSTINIL SODIUM [Suspect]
     Active Substance: TREPROSTINIL SODIUM
     Indication: Pulmonary hypertension
     Dosage: ADDITIONAL DOSAGE REGIMEN 12MICROGRAM(2BREATH) QID WAS ADDED
  3. TREPROSTINIL SODIUM [Suspect]
     Active Substance: TREPROSTINIL SODIUM
  4. BYSTOLIC [Concomitant]
     Active Substance: NEBIVOLOL HYDROCHLORIDE
  5. FERROUS BISGLYCINATE [Concomitant]
     Active Substance: FERROUS BISGLYCINATE
  6. FUROSEMIDE [Concomitant]
     Active Substance: FUROSEMIDE
  7. AMLODIPINE [Concomitant]
     Active Substance: AMLODIPINE BESYLATE
  8. HYDROCODONE [Concomitant]
     Active Substance: HYDROCODONE
  9. NEXIUM 24HR [Concomitant]
     Active Substance: ESOMEPRAZOLE MAGNESIUM
  10. FOLIC ACID [Concomitant]
     Active Substance: FOLIC ACID
  11. VITAMINS [Concomitant]
     Active Substance: VITAMINS
  12. CHOLECALCIFEROL [Concomitant]
     Active Substance: CHOLECALCIFEROL
  13. DOXYCYCLINE HYCLATE [Concomitant]
     Active Substance: DOXYCYCLINE HYCLATE
  14. ALBUTEROL SULFATE [Concomitant]
     Active Substance: ALBUTEROL SULFATE
  15. ATORVASTATIN CALCIUM [ATORVASTATIN CALCIUM PROPYLENE GLYCOL SOLVATE] [Concomitant]
  16. VITAMIN D3 [Concomitant]
     Active Substance: CHOLECALCIFEROL
  17. TADALAFIL [Concomitant]
     Active Substance: TADALAFIL
  18. CEFDINIR [Concomitant]
     Active Substance: CEFDINIR
  19. PREDNISONE [Concomitant]
     Active Substance: PREDNISONE
  20. LEVOFLOXACIN [Concomitant]
     Active Substance: LEVOFLOXACIN
  21. BUDESONIDE [Concomitant]
     Active Substance: BUDESONIDE
  22. CARAC H [Concomitant]
  23. POTASSIUM CHLORIDE [Concomitant]
     Active Substance: POTASSIUM CHLORIDE
  24. TRAMADOL [Concomitant]
     Active Substance: TRAMADOL
  25. LOPERAMIDE HYDROCHLORIDE [Concomitant]
     Active Substance: LOPERAMIDE HYDROCHLORIDE
  26. ACETYLCYSTEINE [Concomitant]
     Active Substance: ACETYLCYSTEINE
  27. OXYGEN [Concomitant]
     Active Substance: OXYGEN
  28. MONTELUKAST SODIUM [Concomitant]
     Active Substance: MONTELUKAST SODIUM
  29. SODIUM CHLORIDE [Concomitant]
     Active Substance: SODIUM CHLORIDE
  30. SPIRONOLACTONE [Concomitant]
     Active Substance: SPIRONOLACTONE
  31. ACETAMINOPHEN AND CODEINE [Concomitant]
     Active Substance: ACETAMINOPHEN\CODEINE PHOSPHATE
  32. ESTRACE [Concomitant]
     Active Substance: ESTRADIOL
  33. FARXIGA [Concomitant]
     Active Substance: DAPAGLIFLOZIN PROPANEDIOL
  34. AZITHROMYCIN [Concomitant]
     Active Substance: AZITHROMYCIN
  35. BENZONATATE [Concomitant]
     Active Substance: BENZONATATE
  36. SYMBICORT [Concomitant]
     Active Substance: BUDESONIDE\FORMOTEROL FUMARATE DIHYDRATE
  37. PLAVIX [Concomitant]
     Active Substance: CLOPIDOGREL BISULFATE
  38. LEVOTHYROXINE SODIUM [Concomitant]
     Active Substance: LEVOTHYROXINE SODIUM
  39. CYCLOBENZAPRINE HYDROCHLORIDE [Concomitant]
     Active Substance: CYCLOBENZAPRINE HYDROCHLORIDE
  40. ONDANSETRON HYDROCHLORIDE [Concomitant]
     Active Substance: ONDANSETRON HYDROCHLORIDE

REACTIONS (9)
  - Diarrhoea [Unknown]
  - Cough [Unknown]
  - Pain in extremity [Unknown]
  - Hypoaesthesia [Unknown]
  - Paraesthesia [Unknown]
  - Sneezing [Unknown]
  - Oedema [Recovered/Resolved]
  - Gastrointestinal disorder [Unknown]
  - Rhinorrhoea [Unknown]
